FAERS Safety Report 4691728-7 (Version None)
Quarter: 2005Q2

REPORT INFORMATION
  Report Type: 
  Country: None (occurrence: None)
  Receive Date: 20050616
  Receipt Date: 20050608
  Transmission Date: 20051028
  Serious: Yes (Other)
  Sender: FDA-Public Use
  Company Number: 200514866US

PATIENT
  Sex: Female

DRUGS (3)
  1. ANZEMET [Suspect]
     Indication: NAUSEA
     Dates: start: 20050525
  2. ANZEMET [Suspect]
     Indication: VOMITING
     Dates: start: 20050525
  3. HYDROXYZINE [Concomitant]
     Dosage: DOSE: UNK

REACTIONS (1)
  - CONVULSION [None]
